FAERS Safety Report 8358818-9 (Version None)
Quarter: 2012Q2

REPORT INFORMATION
  Report Type: 
  Country: None (occurrence: None)
  Receive Date: 20120515
  Receipt Date: 20120502
  Transmission Date: 20120825
  Serious: Yes (Other)
  Sender: FDA-Public Use
  Company Number: US-AMGEN-USASP2012028979

PATIENT
  Age: 58 Year
  Sex: Female

DRUGS (2)
  1. ENBREL [Suspect]
     Dosage: UNK
  2. ENBREL [Suspect]
     Indication: RHEUMATOID ARTHRITIS
     Dosage: UNK

REACTIONS (7)
  - LIGAMENT SPRAIN [None]
  - FATIGUE [None]
  - DRUG INEFFECTIVE [None]
  - LACERATION [None]
  - BEDRIDDEN [None]
  - RHEUMATOID ARTHRITIS [None]
  - JOINT DISLOCATION [None]
